FAERS Safety Report 7518256 (Version 5)
Quarter: 2013Q3

REPORT INFORMATION
  Report Type: Spontaneous
  Country: US (occurrence: US)
  Receive Date: 20100802
  Receipt Date: 20130717
  Transmission Date: 20140515
  Serious: Yes (Life-Threatening, Hospitalization)
  Sender: FDA-Public Use
  Company Number: US-B.I. PHARMACEUTICALS,INC./RIDGEFIELD-2010-BP-08545BP

PATIENT
  Age: 65 Year
  Sex: Female

DRUGS (22)
  1. ZYRTEC D [Concomitant]
     Indication: HYPERSENSITIVITY
     Route: 048
  2. HUMULOG 75/25 [Concomitant]
     Indication: DIABETES MELLITUS
     Dosage: 45 U
     Route: 058
  3. CALTRATE D [Concomitant]
     Dosage: 600 MG
     Route: 048
  4. VITAMIN D [Concomitant]
     Dosage: 2000 U
     Route: 048
  5. FISH OIL [Concomitant]
     Route: 048
  6. VITAMIN B12 [Concomitant]
     Route: 048
  7. ALBUTEROL [Concomitant]
     Route: 055
  8. SPIRIVA HANDIHALER [Suspect]
     Indication: BRONCHITIS CHRONIC
     Dosage: 18 MCG
     Route: 055
     Dates: start: 2002, end: 2008
  9. SPIRIVA HANDIHALER [Suspect]
     Indication: CHRONIC OBSTRUCTIVE PULMONARY DISEASE
     Dosage: 18 MCG
     Route: 055
     Dates: start: 2008
  10. AVELOX [Suspect]
     Indication: BRONCHITIS CHRONIC
     Route: 048
     Dates: start: 2008, end: 2008
  11. ZITHROMAX [Concomitant]
     Indication: BRONCHITIS CHRONIC
     Dosage: M-W-F ONLY ; 500 MG
     Route: 048
     Dates: start: 20100720
  12. PRILOSEC [Concomitant]
     Indication: GASTROOESOPHAGEAL REFLUX DISEASE
     Dosage: 20 MG
     Route: 048
     Dates: start: 20100720
  13. LISINOPRIL [Concomitant]
     Indication: HYPERTENSION
     Dosage: 20 MG
     Route: 048
  14. CHLORTHALIDONE [Concomitant]
     Indication: FLUID IMBALANCE
     Dosage: 25 MG
     Route: 048
  15. XANAX [Concomitant]
     Indication: ANXIETY
     Dosage: 0.5 MG
     Route: 048
  16. PROZAC [Concomitant]
     Indication: DEPRESSION
     Dosage: 60 MG
     Route: 048
  17. NEOMYCIN/POLYMIXIN/HYDROCODONE [Concomitant]
     Indication: EAR PAIN
     Dosage: 60 MG
  18. ADVAIR [Concomitant]
     Indication: CHRONIC OBSTRUCTIVE PULMONARY DISEASE
     Dosage: FORMULATION: 500/ 50; DAILY DOSE: 1000/ 100
     Route: 055
  19. VENTOLIN [Concomitant]
     Indication: CHRONIC OBSTRUCTIVE PULMONARY DISEASE
     Route: 055
  20. FLEXERIL [Concomitant]
     Indication: BACK PAIN
     Route: 048
  21. DARVOCET N-100 [Concomitant]
     Indication: BACK PAIN
     Route: 048
  22. COLCRYS [Concomitant]
     Indication: GOUT
     Route: 048

REACTIONS (15)
  - Apparent death [Recovered/Resolved]
  - Pneumonia [Recovered/Resolved]
  - Hypersensitivity [Recovered/Resolved]
  - Thrombocytopenia [Recovered/Resolved]
  - Skin discolouration [Recovered/Resolved]
  - Pigmentation disorder [Recovered/Resolved]
  - Dry mouth [Not Recovered/Not Resolved]
  - Diabetes mellitus [Not Recovered/Not Resolved]
  - Dry eye [Not Recovered/Not Resolved]
  - Alopecia [Unknown]
  - Onychomadesis [Unknown]
  - Staphylococcal infection [Unknown]
  - Bronchitis [Recovered/Resolved]
  - Dyspnoea [Recovered/Resolved]
  - Asthenia [Not Recovered/Not Resolved]
